FAERS Safety Report 7921412-5 (Version None)
Quarter: 2011Q4

REPORT INFORMATION
  Report Type: 
  Country: None (occurrence: None)
  Receive Date: 20111117
  Receipt Date: 20110812
  Transmission Date: 20120403
  Serious: No
  Sender: FDA-Public Use
  Company Number: US-BAYER-2011-075673

PATIENT
  Age: 78 Year
  Sex: Male
  Weight: 86.168 kg

DRUGS (3)
  1. ALEVE (CAPLET) [Suspect]
     Indication: ARTHRITIS
     Dosage: 2 DF, QD
     Route: 048
  2. ASPIRIN [Concomitant]
  3. METFORMIN HCL [Concomitant]

REACTIONS (1)
  - CONTUSION [None]
